FAERS Safety Report 6200403-9 (Version None)
Quarter: 2009Q2

REPORT INFORMATION
  Report Type: 
  Country: None (occurrence: None)
  Receive Date: 20090522
  Receipt Date: 20090512
  Transmission Date: 20091009
  Serious: Yes (Hospitalization)
  Sender: FDA-Public Use
  Company Number: FR-ABBOTT-09P-056-0502023-00

PATIENT
  Age: 49 Year
  Sex: Male

DRUGS (18)
  1. KALETRA [Suspect]
     Indication: HIV INFECTION
     Route: 048
     Dates: start: 20081223
  2. KALETRA [Suspect]
     Route: 048
     Dates: start: 20090303
  3. TRUVADA [Concomitant]
     Indication: HIV INFECTION
     Route: 048
     Dates: start: 20081223, end: 20090104
  4. EMTRIVA [Concomitant]
     Indication: HIV INFECTION
     Route: 048
     Dates: start: 20090104
  5. ZECLAR [Concomitant]
     Indication: MYCOBACTERIUM AVIUM COMPLEX INFECTION
     Route: 048
     Dates: start: 20081121
  6. FUZEON [Concomitant]
     Indication: HIV INFECTION
     Route: 058
     Dates: start: 20081223
  7. FUZEON [Concomitant]
     Route: 058
     Dates: start: 20090303
  8. ANSATIPINE [Concomitant]
     Indication: MYCOBACTERIUM AVIUM COMPLEX INFECTION
     Dates: start: 20081223
  9. ANSATIPINE [Concomitant]
     Dates: start: 20090216
  10. MYAMBUTOL [Concomitant]
     Indication: MYCOBACTERIUM AVIUM COMPLEX INFECTION
     Dates: start: 20081121
  11. MYAMBUTOL [Concomitant]
     Route: 048
     Dates: start: 20090214
  12. FOLINORAL [Concomitant]
     Indication: SUPPLEMENTATION THERAPY
     Dates: start: 20081121
  13. BACTRIM [Concomitant]
     Indication: ANTIFUNGAL PROPHYLAXIS
     Dates: start: 20081121
  14. TRIFLUCAN [Concomitant]
     Indication: FUNGAL INFECTION
     Dates: start: 20090102
  15. KIVEXA [Concomitant]
     Indication: HIV INFECTION
     Route: 048
     Dates: start: 20090303
  16. RIMIFON [Concomitant]
     Indication: MYCOBACTERIUM AVIUM COMPLEX INFECTION
  17. NICARDIPINE HCL [Concomitant]
     Indication: HYPERTENSION
     Dates: start: 20090124
  18. NOVONORM [Concomitant]
     Indication: DRUG USE FOR UNKNOWN INDICATION

REACTIONS (11)
  - ABSCESS [None]
  - ANAEMIA [None]
  - CHOLESTASIS [None]
  - CONVULSION [None]
  - DISSEMINATED CYTOMEGALOVIRAL INFECTION [None]
  - FALL [None]
  - IMMUNE RECONSTITUTION SYNDROME [None]
  - LARGE INTESTINE PERFORATION [None]
  - PYREXIA [None]
  - RENAL FAILURE [None]
  - SUBDURAL HAEMATOMA [None]
